FAERS Safety Report 19138837 (Version 1)
Quarter: 2021Q2

REPORT INFORMATION
  Report Type: Spontaneous
  Country: IE (occurrence: IE)
  Receive Date: 20210415
  Receipt Date: 20210415
  Transmission Date: 20210717
  Serious: Yes (Other)
  Sender: FDA-Public Use
  Company Number: IE-ACCORD-222231

PATIENT
  Age: 29 Year
  Sex: Male

DRUGS (3)
  1. CISPLATIN. [Suspect]
     Active Substance: CISPLATIN
     Indication: GERM CELL CANCER METASTATIC
     Dosage: DAY 1?5, 20 MG/M2 ; REPEATED EVERY 21 DAYS
     Route: 042
     Dates: start: 2019, end: 2019
  2. ETOPOSIDE. [Suspect]
     Active Substance: ETOPOSIDE
     Indication: GERM CELL CANCER METASTATIC
     Dosage: 100MG/M2, DAY 1?5; REPEATED EVERY 21 DAYS
     Route: 042
     Dates: start: 2019, end: 2019
  3. BLEOMYCIN [Suspect]
     Active Substance: BLEOMYCIN SULFATE
     Indication: GERM CELL CANCER METASTATIC
     Dosage: 30MG; DAY 1, 8 AND 15 ; REPEATED EVERY 21 DAYS
     Route: 042
     Dates: start: 2019, end: 2019

REACTIONS (2)
  - Neutropenic sepsis [Unknown]
  - Off label use [Unknown]

NARRATIVE: CASE EVENT DATE: 2019
